FAERS Safety Report 25487081 (Version 1)
Quarter: 2025Q2

REPORT INFORMATION
  Report Type: Spontaneous
  Country: GB (occurrence: GB)
  Receive Date: 20250627
  Receipt Date: 20250627
  Transmission Date: 20250716
  Serious: Yes (Hospitalization, Other)
  Sender: AUROBINDO
  Company Number: GB-BIOVITRUM-2025-GB-008175

PATIENT
  Sex: Female

DRUGS (3)
  1. MYCOPHENOLATE MOFETIL [Suspect]
     Active Substance: MYCOPHENOLATE MOFETIL
     Indication: Product used for unknown indication
     Route: 065
  2. AVATROMBOPAG [Suspect]
     Active Substance: AVATROMBOPAG
     Indication: Immune thrombocytopenia
     Route: 065
  3. FOSTAMATINIB [Suspect]
     Active Substance: FOSTAMATINIB
     Indication: Product used for unknown indication
     Route: 065

REACTIONS (2)
  - Staphylococcal bacteraemia [Unknown]
  - Drug eruption [Unknown]
